FAERS Safety Report 15062151 (Version 2)
Quarter: 2018Q4

REPORT INFORMATION
  Report Type: Spontaneous
  Country: US (occurrence: US)
  Receive Date: 20180625
  Receipt Date: 20181218
  Transmission Date: 20190204
  Serious: Yes (Disabling)
  Sender: FDA-Public Use
  Company Number: US-OTSUKA-2018_015454

PATIENT
  Sex: Male

DRUGS (3)
  1. ARIPIPRAZOLE. [Concomitant]
     Active Substance: ARIPIPRAZOLE
     Indication: PRODUCT USED FOR UNKNOWN INDICATION
     Dosage: UNK
     Route: 065
     Dates: start: 20150526, end: 20150824
  2. ABILIFY [Suspect]
     Active Substance: ARIPIPRAZOLE
     Indication: BIPOLAR DISORDER
     Dosage: 2 MG, QD
     Route: 065
     Dates: start: 200805
  3. ABILIFY [Suspect]
     Active Substance: ARIPIPRAZOLE
     Indication: MAJOR DEPRESSION
     Dosage: 5 MG, QD
     Route: 065
     Dates: end: 201712

REACTIONS (18)
  - Mean cell volume abnormal [Unknown]
  - Emotional distress [Unknown]
  - Compulsive shopping [Recovered/Resolved]
  - Social problem [Unknown]
  - Mental impairment [Unknown]
  - Blood chloride increased [Unknown]
  - Haematocrit decreased [Unknown]
  - Anhedonia [Unknown]
  - Haemoglobin decreased [Unknown]
  - Loss of employment [Unknown]
  - Economic problem [Unknown]
  - Blood potassium increased [Unknown]
  - Disability [Unknown]
  - Mean cell haemoglobin increased [Unknown]
  - Red blood cell count decreased [Unknown]
  - Blood glucose increased [Unknown]
  - Gambling disorder [Recovered/Resolved]
  - Injury [Unknown]

NARRATIVE: CASE EVENT DATE: 2008
